FAERS Safety Report 7727292-5 (Version None)
Quarter: 2011Q3

REPORT INFORMATION
  Report Type: 
  Country: None (occurrence: None)
  Receive Date: 20110902
  Receipt Date: 20110823
  Transmission Date: 20111222
  Serious: Yes (Other)
  Sender: FDA-Public Use
  Company Number: US-BAYER-2011-014989

PATIENT
  Age: 16 Year
  Sex: Female
  Weight: 75.283 kg

DRUGS (17)
  1. YAZ [Suspect]
     Indication: CONTRACEPTION
     Dosage: UNK
     Route: 048
     Dates: start: 20081001, end: 20090501
  2. VENTOLIN HFA [Concomitant]
     Indication: MULTIPLE ALLERGIES
  3. LORA TAB [Concomitant]
  4. MOBIC [Concomitant]
     Dosage: UNK
     Dates: start: 20080101
  5. AZITHROMYCIN [Concomitant]
     Indication: SINUSITIS
     Dosage: 250 MG, UNK
     Dates: start: 20081119
  6. FLUTICASONE PROPIONATE [Concomitant]
     Indication: MULTIPLE ALLERGIES
  7. METRONIDAZOLE [Concomitant]
     Dosage: 250 MG, UNK
     Dates: start: 20081101
  8. PROMETHAZINE [Concomitant]
     Indication: NAUSEA
     Dosage: 25 MG, UNK
     Dates: start: 20081128
  9. AMOXICILLIN [Concomitant]
     Dosage: 500 MG, UNK
     Dates: start: 20081101
  10. YASMIN [Suspect]
     Dosage: UNK
     Dates: start: 20090701
  11. PHENERGAN [Concomitant]
  12. DROSPIRENONE AND ETHINYL ESTRADIOL [Suspect]
     Dosage: UNK
     Dates: start: 20090501, end: 20090701
  13. VENTOLIN HFA [Concomitant]
     Indication: ASTHMA
     Dosage: UNK
     Dates: start: 20080101
  14. YAZ [Suspect]
     Indication: PREMENSTRUAL SYNDROME
     Dosage: UNK
     Dates: start: 20090801, end: 20100301
  15. HYOSCYAMINE [Concomitant]
  16. FLUTICASONE PROPIONATE [Concomitant]
     Indication: ASTHMA
     Dosage: UNK
     Dates: start: 20080101
  17. ZITHROMAX [Concomitant]

REACTIONS (7)
  - CHOLELITHIASIS [None]
  - INJURY [None]
  - CHOLECYSTITIS CHRONIC [None]
  - PAIN [None]
  - ABDOMINAL PAIN [None]
  - MENTAL DISORDER [None]
  - GENERAL PHYSICAL HEALTH DETERIORATION [None]
